FAERS Safety Report 11680890 (Version 3)
Quarter: 2015Q4

REPORT INFORMATION
  Report Type: Spontaneous
  Country: US (occurrence: US)
  Receive Date: 20151027
  Receipt Date: 20151110
  Transmission Date: 20160304
  Serious: No
  Sender: FDA-Public Use
  Company Number: US-ELI_LILLY_AND_COMPANY-US201006007149

PATIENT
  Age: 77 Year
  Sex: Female

DRUGS (6)
  1. LEVOXIN [Concomitant]
     Indication: THYROID DISORDER
  2. LAXATIVES [Concomitant]
     Active Substance: UNSPECIFIED INGREDIENT
  3. FORTEO [Suspect]
     Active Substance: TERIPARATIDE
     Dosage: 20 UG, QD
     Route: 058
  4. FORTEO [Suspect]
     Active Substance: TERIPARATIDE
     Indication: OSTEOPOROSIS
     Dosage: 20 UG, QD
     Route: 058
     Dates: start: 200911
  5. FORTEO [Suspect]
     Active Substance: TERIPARATIDE
     Dosage: 20 UG, QD
     Route: 058
  6. PRESERVISION LUTEIN EYE VITA.+MIN.SUP.SOFTG. [Concomitant]

REACTIONS (6)
  - Weight decreased [Unknown]
  - Osteoporosis [Unknown]
  - Nerve compression [Unknown]
  - Neuralgia [Recovered/Resolved]
  - Back pain [Unknown]
  - Spinal compression fracture [Unknown]

NARRATIVE: CASE EVENT DATE: 20110716
